FAERS Safety Report 5103001-3 (Version None)
Quarter: 2006Q3

REPORT INFORMATION
  Report Type: 
  Country: None (occurrence: None)
  Receive Date: 20060908
  Receipt Date: 20060825
  Transmission Date: 20061208
  Serious: Yes (Other)
  Sender: FDA-Public Use
  Company Number: 2006VX001250

PATIENT
  Age: 65 Year
  Sex: Male
  Weight: 63 kg

DRUGS (6)
  1. TASMAR [Suspect]
     Indication: PARKINSON'S DISEASE
     Dosage: 100 MG; TID; PO
     Route: 048
     Dates: start: 20060313, end: 20060619
  2. MADOPAR [Concomitant]
  3. AMITRIPTYLINE HCL [Concomitant]
  4. APOMORPHINE [Concomitant]
  5. SALICYLIC ACID [Concomitant]
  6. ENTACAPONE [Concomitant]

REACTIONS (2)
  - ALANINE AMINOTRANSFERASE INCREASED [None]
  - DRUG INEFFECTIVE [None]
